FAERS Safety Report 6268787-3 (Version None)
Quarter: 2009Q3

REPORT INFORMATION
  Report Type: 
  Country: None (occurrence: None)
  Receive Date: 20090715
  Receipt Date: 20090708
  Transmission Date: 20100115
  Serious: Yes (Other)
  Sender: FDA-Public Use
  Company Number: US-JNJCH-2009018807

PATIENT
  Age: 67 Year
  Sex: Female

DRUGS (1)
  1. LISTERINE WHITENING VIBRANT WHITE PRE-BRUSH RINSE [Suspect]
     Indication: DENTAL CARE
     Dosage: TEXT:UNSPECIFIED
     Route: 048

REACTIONS (5)
  - AGEUSIA [None]
  - HEADACHE [None]
  - IRRITABILITY [None]
  - NIGHT SWEATS [None]
  - THIRST [None]
